FAERS Safety Report 9209865 (Version 1)
Quarter: 2012Q4

REPORT INFORMATION
  Report Type: 
  Country: AZ (occurrence: AZ)
  Receive Date: 20120903
  Receipt Date: 20120903
  Transmission Date: 20130627
  Serious: Yes (Death, Other)
  Sender: FDA-Public Use
  Company Number: PHHY2012AZ075408

PATIENT
  Sex: Male

DRUGS (1)
  1. GLIVEC [Suspect]
     Indication: CHRONIC MYELOID LEUKAEMIA
     Dosage: 800 mg, UNK

REACTIONS (3)
  - Blast crisis in myelogenous leukaemia [Fatal]
  - Coma [Unknown]
  - Terminal state [Unknown]
